FAERS Safety Report 18595581 (Version 3)
Quarter: 2022Q1

REPORT INFORMATION
  Report Type: Spontaneous
  Country: US (occurrence: US)
  Receive Date: 20201209
  Receipt Date: 20220222
  Transmission Date: 20220423
  Serious: Yes (Other)
  Sender: FDA-Public Use
  Company Number: US-PFIZER INC-2020477015

PATIENT
  Sex: Female

DRUGS (2)
  1. PREMARIN [Suspect]
     Active Substance: ESTROGENS, CONJUGATED
     Indication: Urinary tract infection
     Dosage: UNK
     Route: 067
  2. PREMARIN [Suspect]
     Active Substance: ESTROGENS, CONJUGATED
     Indication: Dysuria

REACTIONS (6)
  - Wrong technique in product usage process [Unknown]
  - Intentional product use issue [Unknown]
  - Device difficult to use [Unknown]
  - Urinary tract infection [Unknown]
  - Nervousness [Unknown]
  - Off label use [Unknown]
